FAERS Safety Report 7879547-1 (Version None)
Quarter: 2011Q4

REPORT INFORMATION
  Report Type: 
  Country: None (occurrence: None)
  Receive Date: 20111101
  Receipt Date: 20111019
  Transmission Date: 20120403
  Serious: Yes (Hospitalization)
  Sender: FDA-Public Use
  Company Number: US-GLAXOSMITHKLINE-A0887650A

PATIENT
  Age: 63 Year
  Sex: Male

DRUGS (4)
  1. ALTACE [Concomitant]
  2. INSULIN [Concomitant]
  3. AVANDIA [Suspect]
     Indication: DIABETES MELLITUS
     Dosage: 8MG PER DAY
     Route: 048
     Dates: start: 20051018, end: 20061024
  4. TOPROL-XL [Concomitant]

REACTIONS (1)
  - MYOCARDIAL INFARCTION [None]
